FAERS Safety Report 22126828 (Version 4)
Quarter: 2023Q2

REPORT INFORMATION
  Report Type: Report from Study
  Country: US (occurrence: None)
  Receive Date: 20230322
  Receipt Date: 20230504
  Transmission Date: 20230721
  Serious: Yes (Hospitalization)
  Sender: FDA-Public Use
  Company Number: US-Eisai Medical Research-EC-2023-135633

PATIENT
  Age: 72 Year
  Sex: Female

DRUGS (6)
  1. LENVIMA [Suspect]
     Active Substance: LENVATINIB
     Indication: Breast cancer
     Route: 048
     Dates: start: 20230228, end: 202303
  2. LENVIMA [Suspect]
     Active Substance: LENVATINIB
     Indication: Endometrial cancer
     Route: 048
     Dates: start: 20230314, end: 202303
  3. LENVIMA [Suspect]
     Active Substance: LENVATINIB
     Route: 048
     Dates: start: 20230327, end: 2023
  4. LENVIMA [Suspect]
     Active Substance: LENVATINIB
     Route: 048
     Dates: start: 20230403, end: 20230407
  5. KEYTRUDA [Concomitant]
     Active Substance: PEMBROLIZUMAB
     Indication: Breast cancer
     Dosage: DOSE AND FREQUENCY UNKNOWN
  6. FLECAINIDE [Concomitant]
     Active Substance: FLECAINIDE

REACTIONS (10)
  - Blood pressure increased [Unknown]
  - Confusional state [Recovered/Resolved]
  - Blood pressure fluctuation [Unknown]
  - Headache [Not Recovered/Not Resolved]
  - Vomiting [Unknown]
  - Nausea [Unknown]
  - Eye pain [Unknown]
  - Chills [Unknown]
  - Diarrhoea [Unknown]
  - Swelling face [Unknown]

NARRATIVE: CASE EVENT DATE: 20230228
